FAERS Safety Report 18550126 (Version 1)
Quarter: 2020Q4

REPORT INFORMATION
  Report Type: Spontaneous
  Country: GB (occurrence: GB)
  Receive Date: 20201126
  Receipt Date: 20201126
  Transmission Date: 20210114
  Serious: Yes (Other)
  Sender: FDA-Public Use
  Company Number: GB-PFIZER INC-2020464178

PATIENT
  Age: 51 Year
  Sex: Male
  Weight: 76.2 kg

DRUGS (3)
  1. LIDOCAINE HYDROCHLORIDE. [Suspect]
     Active Substance: LIDOCAINE HYDROCHLORIDE
     Dosage: UNK
     Route: 030
     Dates: start: 20201005, end: 20201005
  2. DEPO-MEDRONE [Suspect]
     Active Substance: METHYLPREDNISOLONE
     Dosage: 40 MG
     Route: 030
     Dates: start: 20201005, end: 20201005
  3. LEVOBUPIVACAINE HYDROCHLORIDE [Suspect]
     Active Substance: LEVOBUPIVACAINE HYDROCHLORIDE
     Dosage: 5 MG
     Route: 030
     Dates: start: 20201005, end: 20201005

REACTIONS (3)
  - Hemiparesis [Unknown]
  - Pain [Recovering/Resolving]
  - Hypoaesthesia [Recovering/Resolving]

NARRATIVE: CASE EVENT DATE: 20201005
